FAERS Safety Report 23995820 (Version 6)
Quarter: 2025Q4

REPORT INFORMATION
  Report Type: Spontaneous
  Country: JP (occurrence: JP)
  Receive Date: 20240620
  Receipt Date: 20251110
  Transmission Date: 20260118
  Serious: Yes (Life-Threatening, Disabling, Other)
  Sender: ALEXION PHARMACEUTICALS
  Company Number: 2024A140741

PATIENT
  Age: 74 Year
  Sex: Male
  Weight: 75 kg

DRUGS (10)
  1. ANDEXXA [Suspect]
     Active Substance: ANDEXANET ALFA
     Indication: Cerebellar haemorrhage
     Dosage: 800 MILLIGRAM, UNK, FREQUENCY: UNK
     Dates: start: 20240606, end: 20240606
  2. ANDEXXA [Suspect]
     Active Substance: ANDEXANET ALFA
     Dosage: 1000 MILLIGRAM, UNK, FREQUENCY: UNK
     Dates: start: 20240607, end: 20240607
  3. CARBAZOCHROME SODIUM SULFONATE [Suspect]
     Active Substance: CARBAZOCHROME SODIUM SULFONATE
     Indication: Cerebellar haemorrhage
     Dosage: 100 MILLIGRAM, QD
     Dates: start: 20240606, end: 20240609
  4. TRANSAMIN [Suspect]
     Active Substance: TRANEXAMIC ACID
     Indication: Cerebellar haemorrhage
     Dosage: 10 MILLILITER, QD
     Dates: start: 20240606, end: 20240609
  5. NICARDIPINE HYDROCHLORIDE [Suspect]
     Active Substance: NICARDIPINE HYDROCHLORIDE
     Indication: Hypertension
     Dosage: 40 MILLIGRAM, QD
     Dates: start: 20240606, end: 20240608
  6. FAMOTIDINE [Suspect]
     Active Substance: FAMOTIDINE
     Indication: Prophylaxis against gastrointestinal ulcer
     Dosage: 20 MILLIGRAM, QD
     Dates: start: 20240606, end: 20240609
  7. XARELTO [Suspect]
     Active Substance: RIVAROXABAN
     Indication: Atrial fibrillation
     Dosage: DOSE UNKNOWN
     Dates: start: 20240530, end: 20240606
  8. BENIDIPINE HYDROCHLORIDE [Suspect]
     Active Substance: BENIDIPINE HYDROCHLORIDE
     Indication: Hypertension
     Dosage: 4 MILLIGRAM, QD
     Dates: start: 20240530, end: 20240606
  9. ROSUVASTATIN [Concomitant]
     Active Substance: ROSUVASTATIN
     Indication: Dyslipidaemia
     Dosage: 2.5 MILLIGRAM, QD
     Dates: start: 20240530, end: 20240606
  10. FEBUXOSTAT [Concomitant]
     Active Substance: FEBUXOSTAT
     Indication: Hyperuricaemia
     Dosage: 20 MILLIGRAM, QD
     Dates: start: 20240530, end: 20240606

REACTIONS (11)
  - Cerebral thrombosis [Not Recovered/Not Resolved]
  - Ventricular tachycardia [Unknown]
  - Anaemia [Unknown]
  - Cardiac failure [Recovering/Resolving]
  - Heart failure with reduced ejection fraction [Recovering/Resolving]
  - Pneumonia [Unknown]
  - Pleural effusion [Unknown]
  - Malnutrition [Unknown]
  - Oedema peripheral [Unknown]
  - Obstructive airways disorder [Unknown]
  - Cerebral infarction [Unknown]

NARRATIVE: CASE EVENT DATE: 20240601
